FAERS Safety Report 4806534-X (Version None)
Quarter: 2005Q4

REPORT INFORMATION
  Report Type: 
  Country: None (occurrence: None)
  Receive Date: 20051019
  Receipt Date: 20050930
  Transmission Date: 20060501
  Serious: Yes (Hospitalization, Other)
  Sender: FDA-Public Use
  Company Number: WAES 0510HKG00003

PATIENT
  Age: 76 Year
  Sex: Male

DRUGS (3)
  1. DECADRON [Suspect]
     Indication: METASTASES TO CENTRAL NERVOUS SYSTEM
     Dosage: 2 MG/BID PO
     Route: 048
     Dates: start: 20050816
  2. TEMOZOLOMIDE [Suspect]
     Indication: METASTASES TO CENTRAL NERVOUS SYSTEM
  3. FAMOTIDINE [Concomitant]

REACTIONS (2)
  - HYPONATRAEMIA [None]
  - LOWER RESPIRATORY TRACT INFECTION [None]
